FAERS Safety Report 9387743 (Version 1)
Quarter: 2013Q3

REPORT INFORMATION
  Report Type: Spontaneous
  Country: US (occurrence: US)
  Receive Date: 20130708
  Receipt Date: 20130708
  Transmission Date: 20140515
  Serious: No
  Sender: FDA-Public Use
  Company Number: US-B.I. PHARMACEUTICALS,INC./RIDGEFIELD-2013-BI-19195BP

PATIENT
  Age: 74 Year
  Sex: Female
  Weight: 91 kg

DRUGS (12)
  1. PRADAXA [Suspect]
     Indication: ATRIAL FIBRILLATION
     Dosage: 300 MG
     Route: 048
     Dates: start: 2012
  2. POTASSIUM [Concomitant]
     Dosage: 20 MEQ
     Route: 048
  3. AMIODERONE [Concomitant]
     Indication: ATRIAL FIBRILLATION
     Dosage: 200 MG
     Route: 048
  4. TYLENOL EXTRA STRENGTH [Concomitant]
     Indication: FIBROMYALGIA
     Route: 048
  5. TYLENOL PM [Concomitant]
     Dosage: 500 MG
     Route: 048
  6. ELAVIL [Concomitant]
     Indication: RESTLESS LEGS SYNDROME
     Dosage: 100 MG
     Route: 048
  7. ATIVAN [Concomitant]
     Indication: ANXIETY
     Dosage: 2 MG
     Route: 048
  8. COREG [Concomitant]
     Indication: HYPERTENSION
     Dosage: 25 MG
     Route: 048
  9. LORTAB [Concomitant]
     Indication: FIBROMYALGIA
     Dosage: (TABLET) STRENGTH: 7.5/500 MG;
     Route: 048
  10. VITAMIN B [Concomitant]
     Route: 048
  11. LASIX [Concomitant]
     Indication: FLUID RETENTION
     Route: 048
  12. VITAMIN B 12 INJECTION [Concomitant]
     Indication: VITAMIN B12 DEFICIENCY
     Dosage: (INTRAMUSCULAR)
     Route: 030

REACTIONS (3)
  - Injury [Not Recovered/Not Resolved]
  - Oesophageal stenosis [Not Recovered/Not Resolved]
  - Choking [Recovered/Resolved]
